FAERS Safety Report 17989568 (Version 1)
Quarter: 2020Q3

REPORT INFORMATION
  Report Type: Spontaneous
  Country: US (occurrence: US)
  Receive Date: 20200707
  Receipt Date: 20200707
  Transmission Date: 20201103
  Serious: Yes (Hospitalization)
  Sender: FDA-Public Use
  Company Number: US-MYLANLABS-2020M1061488

PATIENT
  Age: 59 Year
  Sex: Male

DRUGS (7)
  1. BLEOMYCIN [Suspect]
     Active Substance: BLEOMYCIN SULFATE
     Indication: HODGKIN^S DISEASE MIXED CELLULARITY STAGE II SUBDIAPHRAGMATIC
     Dosage: MOPP/ABV HYBRID CHEMOTHERAPY
     Route: 065
     Dates: end: 199704
  2. VINBLASTINE [Suspect]
     Active Substance: VINBLASTINE
     Indication: HODGKIN^S DISEASE MIXED CELLULARITY STAGE II SUBDIAPHRAGMATIC
     Dosage: MOPP/ABV HYBRID CHEMOTHERAPY
     Route: 065
     Dates: end: 199704
  3. PROCARBAZINE [Suspect]
     Active Substance: PROCARBAZINE
     Indication: HODGKIN^S DISEASE MIXED CELLULARITY STAGE II SUBDIAPHRAGMATIC
     Dosage: RECEIVED 6 CYCLES; MOPP/ABV HYBRID CHEMOTHERAPY
     Route: 065
     Dates: end: 199704
  4. PREDNISONE. [Suspect]
     Active Substance: PREDNISONE
     Indication: HODGKIN^S DISEASE MIXED CELLULARITY STAGE II SUBDIAPHRAGMATIC
     Dosage: RECEIVED 6 CYCLES; MOPP/ABV HYBRID CHEMOTHERAPY
     Route: 065
     Dates: end: 199704
  5. DOXORUBICIN [Suspect]
     Active Substance: DOXORUBICIN
     Indication: HODGKIN^S DISEASE MIXED CELLULARITY STAGE II SUBDIAPHRAGMATIC
     Dosage: MOPP/ABV HYBRID CHEMOTHERAPY
     Route: 065
     Dates: end: 199704
  6. MECHLORETHAMINE [Suspect]
     Active Substance: MECHLORETHAMINE
     Indication: HODGKIN^S DISEASE MIXED CELLULARITY STAGE II SUBDIAPHRAGMATIC
     Dosage: RECEIVED 6 CYCLES; MOPP/ABV HYBRID CHEMOTHERAPY
     Route: 065
     Dates: end: 199704
  7. VINCRISTINE [Suspect]
     Active Substance: VINCRISTINE
     Indication: HODGKIN^S DISEASE MIXED CELLULARITY STAGE II SUBDIAPHRAGMATIC
     Dosage: RECEIVED 6 CYCLES; MOPP/ABV HYBRID CHEMOTHERAPY
     Route: 065
     Dates: end: 199704

REACTIONS (2)
  - Dysphagia [Unknown]
  - Aspiration [Unknown]
